FAERS Safety Report 9147161 (Version 1)
Quarter: 2013Q1

REPORT INFORMATION
  Report Type: Spontaneous
  Country: DK (occurrence: None)
  Receive Date: 20130213
  Receipt Date: 20130213
  Transmission Date: 20140127
  Serious: Yes (Death)
  Sender: FDA-Public Use
  Company Number: 2013MA000950

PATIENT
  Sex: Male

DRUGS (2)
  1. CITALOPRAM [Suspect]
     Dosage: ; PO
     Route: 048
  2. FLUOXETINE [Suspect]
     Dosage: 20  MG; QD; PO?1 WEEK
     Route: 048

REACTIONS (3)
  - Completed suicide [None]
  - Intentional drug misuse [None]
  - Asphyxia [None]
